FAERS Safety Report 13941023 (Version 1)
Quarter: 2017Q3

REPORT INFORMATION
  Report Type: Report from Study
  Country: IT (occurrence: IT)
  Receive Date: 20170906
  Receipt Date: 20170906
  Transmission Date: 20171127
  Serious: Yes (Hospitalization)
  Sender: FDA-Public Use
  Company Number: IT-ASTRAZENECA-2017SE81496

PATIENT
  Age: 70 Year
  Sex: Male
  Weight: 96 kg

DRUGS (52)
  1. MEDI4736 [Suspect]
     Active Substance: DURVALUMAB
     Indication: SQUAMOUS CELL CARCINOMA OF HEAD AND NECK
     Dosage: 920.0MG ONCE/SINGLE ADMINISTRATION
     Route: 042
     Dates: start: 20160516, end: 20160516
  2. MEDI4736 [Suspect]
     Active Substance: DURVALUMAB
     Indication: SQUAMOUS CELL CARCINOMA OF HEAD AND NECK
     Dosage: 920.0MG ONCE/SINGLE ADMINISTRATION
     Route: 042
     Dates: start: 20160923, end: 20160923
  3. MEDI4736 [Suspect]
     Active Substance: DURVALUMAB
     Indication: SQUAMOUS CELL CARCINOMA OF HEAD AND NECK
     Dosage: 920.0MG ONCE/SINGLE ADMINISTRATION
     Route: 042
     Dates: start: 20161007, end: 20161007
  4. TARGIN [Concomitant]
     Active Substance: NALOXONE HYDROCHLORIDE\OXYCODONE HYDROCHLORIDE
     Route: 065
     Dates: start: 20151202
  5. DELTACORTENE [Concomitant]
     Active Substance: PREDNISONE
     Indication: PSORIASIS
     Route: 065
     Dates: start: 201604, end: 20160417
  6. URBASON [Concomitant]
     Active Substance: METHYLPREDNISOLONE
     Indication: DYSPNOEA
     Route: 065
     Dates: start: 20170702
  7. MEDI4736 [Suspect]
     Active Substance: DURVALUMAB
     Indication: SQUAMOUS CELL CARCINOMA OF HEAD AND NECK
     Dosage: 920.0MG ONCE/SINGLE ADMINISTRATION
     Route: 042
     Dates: start: 20160310, end: 20160310
  8. MEDI4736 [Suspect]
     Active Substance: DURVALUMAB
     Indication: SQUAMOUS CELL CARCINOMA OF HEAD AND NECK
     Dosage: 920.0MG ONCE/SINGLE ADMINISTRATION
     Route: 042
     Dates: start: 20160613, end: 20160613
  9. MEDI4736 [Suspect]
     Active Substance: DURVALUMAB
     Indication: SQUAMOUS CELL CARCINOMA OF HEAD AND NECK
     Dosage: 920.0MG ONCE/SINGLE ADMINISTRATION
     Route: 042
     Dates: start: 20160713, end: 20160713
  10. MEDI4736 [Suspect]
     Active Substance: DURVALUMAB
     Indication: SQUAMOUS CELL CARCINOMA OF HEAD AND NECK
     Dosage: 920.0MG ONCE/SINGLE ADMINISTRATION
     Route: 042
     Dates: start: 20160909, end: 20160909
  11. MEDI4736 [Suspect]
     Active Substance: DURVALUMAB
     Indication: SQUAMOUS CELL CARCINOMA OF HEAD AND NECK
     Dosage: 920.0MG ONCE/SINGLE ADMINISTRATION
     Route: 042
     Dates: start: 20161114, end: 20161114
  12. MEDI4736 [Suspect]
     Active Substance: DURVALUMAB
     Indication: SQUAMOUS CELL CARCINOMA OF HEAD AND NECK
     Dosage: 920.0MG ONCE/SINGLE ADMINISTRATION
     Route: 042
     Dates: start: 20170517, end: 20170517
  13. LANSOPRAZOLE. [Concomitant]
     Active Substance: LANSOPRAZOLE
     Indication: PROPHYLAXIS
     Route: 065
     Dates: start: 20151202
  14. LYRICA [Concomitant]
     Active Substance: PREGABALIN
     Route: 065
     Dates: start: 20151202
  15. EUTIROX [Concomitant]
     Active Substance: LEVOTHYROXINE SODIUM
     Indication: HYPOTHYROIDISM
     Route: 065
     Dates: start: 20160404, end: 20160417
  16. MEDI4736 [Suspect]
     Active Substance: DURVALUMAB
     Indication: SQUAMOUS CELL CARCINOMA OF HEAD AND NECK
     Dosage: 910.0MG ONCE/SINGLE ADMINISTRATION
     Route: 042
     Dates: start: 20160125, end: 20160125
  17. MEDI4736 [Suspect]
     Active Substance: DURVALUMAB
     Indication: SQUAMOUS CELL CARCINOMA OF HEAD AND NECK
     Dosage: 920.0MG ONCE/SINGLE ADMINISTRATION
     Route: 042
     Dates: start: 20160322, end: 20160322
  18. MEDI4736 [Suspect]
     Active Substance: DURVALUMAB
     Indication: SQUAMOUS CELL CARCINOMA OF HEAD AND NECK
     Dosage: 920.0MG ONCE/SINGLE ADMINISTRATION
     Route: 042
     Dates: start: 20160629, end: 20160629
  19. MEDI4736 [Suspect]
     Active Substance: DURVALUMAB
     Indication: SQUAMOUS CELL CARCINOMA OF HEAD AND NECK
     Dosage: 920.0MG ONCE/SINGLE ADMINISTRATION
     Route: 042
     Dates: start: 20160824, end: 20160824
  20. UROREC [Concomitant]
     Active Substance: SILODOSIN
     Route: 065
  21. EUTIROX [Concomitant]
     Active Substance: LEVOTHYROXINE SODIUM
     Indication: HYPOTHYROIDISM
     Dates: start: 20160418
  22. MOVICOL [Concomitant]
     Active Substance: POLYETHYLENE GLYCOL 3350\POTASSIUM CHLORIDE\SODIUM BICARBONATE\SODIUM CHLORIDE
     Indication: PROPHYLAXIS
     Route: 065
     Dates: start: 20170221
  23. MEDI4736 [Suspect]
     Active Substance: DURVALUMAB
     Indication: SQUAMOUS CELL CARCINOMA OF HEAD AND NECK
     Dosage: 920.0MG ONCE/SINGLE ADMINISTRATION
     Route: 042
     Dates: start: 20160404, end: 20160404
  24. MEDI4736 [Suspect]
     Active Substance: DURVALUMAB
     Indication: SQUAMOUS CELL CARCINOMA OF HEAD AND NECK
     Dosage: 920.0MG ONCE/SINGLE ADMINISTRATION
     Route: 042
     Dates: start: 20160727, end: 20160727
  25. MEDI4736 [Suspect]
     Active Substance: DURVALUMAB
     Indication: SQUAMOUS CELL CARCINOMA OF HEAD AND NECK
     Dosage: 920.0MG ONCE/SINGLE ADMINISTRATION
     Route: 042
     Dates: start: 20161213, end: 20161213
  26. DELTACORTENE [Concomitant]
     Active Substance: PREDNISONE
     Indication: HYPOTHYROIDISM
     Dates: start: 20160418, end: 20160504
  27. DELTACORTENE [Concomitant]
     Active Substance: PREDNISONE
     Indication: PSORIASIS
     Dates: start: 20160727, end: 20161114
  28. DELTACORTENE [Concomitant]
     Active Substance: PREDNISONE
     Indication: PSORIASIS
     Dates: start: 20161114
  29. FLUIMUCIL [Concomitant]
     Active Substance: ACETYLCYSTEINE
     Indication: DYSPNOEA
     Route: 065
     Dates: start: 20170703, end: 20170725
  30. MEDI4736 [Suspect]
     Active Substance: DURVALUMAB
     Indication: SQUAMOUS CELL CARCINOMA OF HEAD AND NECK
     Dosage: 920.0MG ONCE/SINGLE ADMINISTRATION
     Route: 042
     Dates: start: 20160111, end: 20160111
  31. MEDI4736 [Suspect]
     Active Substance: DURVALUMAB
     Indication: SQUAMOUS CELL CARCINOMA OF HEAD AND NECK
     Dosage: 910.0MG ONCE/SINGLE ADMINISTRATION
     Route: 042
     Dates: start: 20160223, end: 20160223
  32. MEDI4736 [Suspect]
     Active Substance: DURVALUMAB
     Indication: SQUAMOUS CELL CARCINOMA OF HEAD AND NECK
     Dosage: 920.0MG ONCE/SINGLE ADMINISTRATION
     Route: 042
     Dates: start: 20161026, end: 20161026
  33. MEDI4736 [Suspect]
     Active Substance: DURVALUMAB
     Indication: SQUAMOUS CELL CARCINOMA OF HEAD AND NECK
     Dosage: 920.0MG ONCE/SINGLE ADMINISTRATION
     Route: 042
     Dates: start: 20161128, end: 20161128
  34. MEDI4736 [Suspect]
     Active Substance: DURVALUMAB
     Indication: SQUAMOUS CELL CARCINOMA OF HEAD AND NECK
     Dosage: 920.0MG ONCE/SINGLE ADMINISTRATION
     Route: 042
     Dates: start: 20170421, end: 20170421
  35. MEDI4736 [Suspect]
     Active Substance: DURVALUMAB
     Indication: SQUAMOUS CELL CARCINOMA OF HEAD AND NECK
     Dosage: 920.0MG ONCE/SINGLE ADMINISTRATION
     Route: 042
     Dates: start: 20170614, end: 20170614
  36. DOVOBET GEL [Concomitant]
     Route: 065
     Dates: start: 2011
  37. DELTACORTENE [Concomitant]
     Active Substance: PREDNISONE
     Indication: HYPOTHYROIDISM
     Route: 065
     Dates: start: 201604, end: 20160417
  38. DELTACORTENE [Concomitant]
     Active Substance: PREDNISONE
     Indication: PSORIASIS
     Dates: start: 20160505, end: 20160726
  39. DELTACORTENE [Concomitant]
     Active Substance: PREDNISONE
     Indication: HYPOTHYROIDISM
     Dates: start: 20160727, end: 20161114
  40. MEDI4736 [Suspect]
     Active Substance: DURVALUMAB
     Indication: SQUAMOUS CELL CARCINOMA OF HEAD AND NECK
     Dosage: 910.0MG ONCE/SINGLE ADMINISTRATION
     Route: 042
     Dates: start: 20160209, end: 20160209
  41. MEDI4736 [Suspect]
     Active Substance: DURVALUMAB
     Indication: SQUAMOUS CELL CARCINOMA OF HEAD AND NECK
     Dosage: 920.0MG ONCE/SINGLE ADMINISTRATION
     Route: 042
     Dates: start: 20160810, end: 20160810
  42. MEDI4736 [Suspect]
     Active Substance: DURVALUMAB
     Indication: SQUAMOUS CELL CARCINOMA OF HEAD AND NECK
     Dosage: 920.0MG ONCE/SINGLE ADMINISTRATION
     Route: 042
     Dates: start: 20170711, end: 20170711
  43. DELTACORTENE [Concomitant]
     Active Substance: PREDNISONE
     Indication: HYPOTHYROIDISM
     Dates: start: 20160728, end: 20161114
  44. MOMETASONE [Concomitant]
     Active Substance: MOMETASONE
     Indication: PSORIASIS
     Route: 065
     Dates: start: 20170315
  45. MEDI4736 [Suspect]
     Active Substance: DURVALUMAB
     Indication: SQUAMOUS CELL CARCINOMA OF HEAD AND NECK
     Dosage: 920.0MG ONCE/SINGLE ADMINISTRATION
     Route: 042
     Dates: start: 20160418, end: 20160418
  46. MEDI4736 [Suspect]
     Active Substance: DURVALUMAB
     Indication: SQUAMOUS CELL CARCINOMA OF HEAD AND NECK
     Dosage: 920.0MG ONCE/SINGLE ADMINISTRATION
     Route: 042
     Dates: start: 20170103, end: 20170103
  47. MEDI4736 [Suspect]
     Active Substance: DURVALUMAB
     Indication: SQUAMOUS CELL CARCINOMA OF HEAD AND NECK
     Dosage: 920.0MG ONCE/SINGLE ADMINISTRATION
     Route: 042
     Dates: start: 20170117, end: 20170117
  48. MEDI4736 [Suspect]
     Active Substance: DURVALUMAB
     Indication: SQUAMOUS CELL CARCINOMA OF HEAD AND NECK
     Dosage: 920.0MG ONCE/SINGLE ADMINISTRATION
     Route: 042
     Dates: start: 20160530, end: 20160530
  49. DELTACORTENE [Concomitant]
     Active Substance: PREDNISONE
     Indication: PSORIASIS
     Dates: start: 20160418, end: 20160504
  50. DELTACORTENE [Concomitant]
     Active Substance: PREDNISONE
     Indication: HYPOTHYROIDISM
     Dates: start: 20160505, end: 20160726
  51. DELTACORTENE [Concomitant]
     Active Substance: PREDNISONE
     Indication: PSORIASIS
     Dates: start: 20160728, end: 20161114
  52. DELTACORTENE [Concomitant]
     Active Substance: PREDNISONE
     Indication: HYPOTHYROIDISM
     Dates: start: 20161114

REACTIONS (1)
  - Arthritis [Recovered/Resolved]

NARRATIVE: CASE EVENT DATE: 20170807
